FAERS Safety Report 7054511-3 (Version None)
Quarter: 2010Q4

REPORT INFORMATION
  Report Type: 
  Country: None (occurrence: None)
  Receive Date: 20101020
  Receipt Date: 20101007
  Transmission Date: 20110411
  Serious: Yes (Hospitalization)
  Sender: FDA-Public Use
  Company Number: NL-CELGENEUS-114-21880-10082359

PATIENT
  Sex: Male
  Weight: 55 kg

DRUGS (11)
  1. REVLIMID [Suspect]
     Indication: MULTIPLE MYELOMA
     Route: 048
     Dates: start: 20100813, end: 20100823
  2. MELPHALAN HYDROCHLORIDE [Suspect]
     Indication: MULTIPLE MYELOMA
     Route: 048
     Dates: start: 20100813, end: 20100815
  3. PREDNISONE TAB [Suspect]
     Indication: MULTIPLE MYELOMA
     Route: 048
     Dates: start: 20100813, end: 20100815
  4. LEVOFLOXACIN [Concomitant]
     Indication: PROPHYLAXIS
     Route: 048
     Dates: start: 20100810
  5. FLUCONAZOLE [Concomitant]
     Indication: PROPHYLAXIS
     Route: 048
     Dates: start: 20100820
  6. ACETYLSALICYLIC ACID SRT [Concomitant]
     Indication: PAIN
     Route: 048
  7. ENALAPRIL MALEATE [Concomitant]
     Indication: CARDIAC DISORDER
     Route: 048
  8. DIPYRIDAMOL [Concomitant]
     Indication: CARDIAC DISORDER
     Route: 048
  9. LIPITOR [Concomitant]
     Route: 048
  10. FINASTERIDE [Concomitant]
     Route: 048
  11. SUPRADYN FORTE [Concomitant]
     Indication: VITAMIN SUPPLEMENTATION
     Route: 048

REACTIONS (2)
  - FEBRILE NEUTROPENIA [None]
  - VASCULITIS [None]
